FAERS Safety Report 23935938 (Version 6)
Quarter: 2024Q3

REPORT INFORMATION
  Report Type: Report from Study
  Country: US (occurrence: US)
  Receive Date: 20240604
  Receipt Date: 20240902
  Transmission Date: 20241016
  Serious: Yes (Hospitalization, Other)
  Sender: NOVARTIS
  Company Number: US-002147023-NVSC2024US092004

PATIENT
  Age: 72 Year
  Sex: Female

DRUGS (4)
  1. KESIMPTA [Suspect]
     Active Substance: OFATUMUMAB
     Indication: Multiple sclerosis
     Dosage: 20 MG, QW
     Route: 058
     Dates: start: 20240405
  2. KESIMPTA [Suspect]
     Active Substance: OFATUMUMAB
     Indication: Relapsing multiple sclerosis
  3. OXYCODONE [Concomitant]
     Active Substance: OXYCODONE
     Indication: Product used for unknown indication
     Dosage: UNK
     Route: 065
  4. MORPHINE [Concomitant]
     Active Substance: MORPHINE
     Indication: Product used for unknown indication
     Dosage: UNK
     Route: 065

REACTIONS (10)
  - Urinary tract infection [Unknown]
  - Loss of consciousness [Unknown]
  - Neuropathy peripheral [Unknown]
  - Hot flush [Unknown]
  - Tremor [Unknown]
  - Chills [Unknown]
  - Pain [Unknown]
  - Back pain [Unknown]
  - Drug intolerance [Unknown]
  - Asthenia [Unknown]

NARRATIVE: CASE EVENT DATE: 20240405
